FAERS Safety Report 9338781 (Version 2)
Quarter: 2013Q2

REPORT INFORMATION
  Report Type: Spontaneous
  Country: CO (occurrence: CO)
  Receive Date: 20130610
  Receipt Date: 20130618
  Transmission Date: 20140414
  Serious: Yes (Other)
  Sender: FDA-Public Use
  Company Number: CO-ASTELLAS-2013US005947

PATIENT
  Sex: Female

DRUGS (1)
  1. PROGRAF [Suspect]
     Indication: RENAL TRANSPLANT
     Dosage: 4 DF, UID/QD
     Route: 065
     Dates: start: 20121226

REACTIONS (3)
  - General physical health deterioration [Unknown]
  - Blood creatinine increased [Unknown]
  - Treatment noncompliance [Unknown]
